FAERS Safety Report 14794168 (Version 3)
Quarter: 2018Q2

REPORT INFORMATION
  Report Type: Spontaneous
  Country: US (occurrence: US)
  Receive Date: 20180423
  Receipt Date: 20180503
  Transmission Date: 20180711
  Serious: No
  Sender: FDA-Public Use
  Company Number: US-PFIZER INC-2018163586

PATIENT
  Age: 66 Year
  Sex: Female
  Weight: 68.4 kg

DRUGS (2)
  1. DEMEROL [Suspect]
     Active Substance: MEPERIDINE HYDROCHLORIDE
     Indication: ARTHRALGIA
     Dosage: UNK
     Dates: start: 20180418
  2. DEMEROL [Suspect]
     Active Substance: MEPERIDINE HYDROCHLORIDE
     Indication: BACK PAIN

REACTIONS (2)
  - Dry mouth [Unknown]
  - Incoherent [Unknown]

NARRATIVE: CASE EVENT DATE: 20180418
